FAERS Safety Report 5314155-8 (Version None)
Quarter: 2007Q2

REPORT INFORMATION
  Report Type: 
  Country: None (occurrence: None)
  Receive Date: 20070426
  Receipt Date: 20070417
  Transmission Date: 20071010
  Serious: Yes (Hospitalization)
  Sender: FDA-Public Use
  Company Number: 16113

PATIENT
  Age: 53 Year
  Sex: Female

DRUGS (7)
  1. CISPLATIN [Suspect]
     Indication: LUNG ADENOCARCINOMA
     Dosage: 70 MG/M2 PER _CYCLE IV
     Route: 042
  2. CISPLATIN [Suspect]
     Indication: METASTASES TO LUNG
     Dosage: 70 MG/M2 PER _CYCLE IV
     Route: 042
  3. CISPLATIN [Suspect]
     Indication: METASTASES TO PLEURA
     Dosage: 70 MG/M2 PER _CYCLE IV
     Route: 042
  4. CARBOPLATIN [Suspect]
     Indication: LUNG ADENOCARCINOMA
     Dosage: 260 MG
  5. CARBOPLATIN [Suspect]
     Indication: METASTASES TO LUNG
     Dosage: 260 MG
  6. CARBOPLATIN [Suspect]
     Indication: METASTASES TO PLEURA
     Dosage: 260 MG
  7. GEMCITABINE HCL [Concomitant]

REACTIONS (12)
  - ABDOMINAL PAIN [None]
  - BLINDNESS CORTICAL [None]
  - BRAIN OEDEMA [None]
  - CONVULSION [None]
  - CREATININE RENAL CLEARANCE DECREASED [None]
  - HEADACHE [None]
  - HYPOMAGNESAEMIA [None]
  - HYPOPHOSPHATAEMIA [None]
  - NEUTROPENIA [None]
  - PYREXIA [None]
  - REVERSIBLE POSTERIOR LEUKOENCEPHALOPATHY SYNDROME [None]
  - THROMBOCYTOPENIA [None]
